FAERS Safety Report 22600046 (Version 1)
Quarter: 2023Q2

REPORT INFORMATION
  Report Type: Spontaneous
  Country: US (occurrence: None)
  Receive Date: 20230613
  Receipt Date: 20230613
  Transmission Date: 20230722
  Serious: Yes (Other)
  Sender: FDA-Public Use
  Company Number: None

PATIENT
  Age: 49 Year
  Sex: Female
  Weight: 72 kg

DRUGS (16)
  1. TRINTELLIX [Suspect]
     Active Substance: VORTIOXETINE HYDROBROMIDE
     Indication: Antidepressant therapy
     Dosage: OTHER QUANTITY : 1 TABLET(S);?
     Route: 048
  2. ARMOUR THYROID [Concomitant]
     Active Substance: THYROID, PORCINE
  3. AMLODIPINE [Concomitant]
     Active Substance: AMLODIPINE BESYLATE
  4. GABAPENTIN [Concomitant]
     Active Substance: GABAPENTIN
  5. SPIRONOLACTONE [Concomitant]
     Active Substance: SPIRONOLACTONE
  6. LACTULOSE [Concomitant]
     Active Substance: LACTULOSE
  7. VISTARIL [Concomitant]
     Active Substance: HYDROXYZINE PAMOATE
  8. TRAZODONE [Concomitant]
     Active Substance: TRAZODONE HYDROCHLORIDE
  9. FIORICET [Concomitant]
     Active Substance: ACETAMINOPHEN\BUTALBITAL\CAFFEINE
  10. FUROSEMIDE [Concomitant]
     Active Substance: FUROSEMIDE
  11. zifaxan [Concomitant]
  12. TRINTELLIX [Concomitant]
     Active Substance: VORTIOXETINE HYDROBROMIDE
  13. VITAMIN D3 [Concomitant]
     Active Substance: CHOLECALCIFEROL
  14. VITAMINS [Concomitant]
     Active Substance: VITAMINS
  15. POTASSIUM CHLORIDE [Concomitant]
     Active Substance: POTASSIUM CHLORIDE
  16. liver renew [Concomitant]

REACTIONS (10)
  - Nausea [None]
  - Vomiting [None]
  - Chills [None]
  - Decreased appetite [None]
  - Tremor [None]
  - Epistaxis [None]
  - Palpitations [None]
  - Tremor [None]
  - Feeling of body temperature change [None]
  - Migraine [None]

NARRATIVE: CASE EVENT DATE: 20230613
